FAERS Safety Report 20431011 (Version 2)
Quarter: 2022Q1

REPORT INFORMATION
  Report Type: Other
  Country: US (occurrence: None)
  Receive Date: 20220204
  Receipt Date: 20220211
  Transmission Date: 20220424
  Serious: No
  Sender: FDA-Public Use
  Company Number: US-ROCHE-3012621

PATIENT
  Sex: Male

DRUGS (1)
  1. OCREVUS [Suspect]
     Active Substance: OCRELIZUMAB
     Indication: Relapsing multiple sclerosis
     Dosage: LAST OCREVUS INFUSION DATE 07/DEC/20,  200 MG 30/DEC/2020, 01/JUL/2021
     Route: 042
     Dates: start: 20190510

REACTIONS (1)
  - COVID-19 [Unknown]
